FAERS Safety Report 12486280 (Version 1)
Quarter: 2016Q2

REPORT INFORMATION
  Report Type: Spontaneous
  Country: US (occurrence: US)
  Receive Date: 20160621
  Receipt Date: 20160621
  Transmission Date: 20160815
  Serious: Yes (Hospitalization)
  Sender: FDA-Public Use
  Company Number: US-ELI_LILLY_AND_COMPANY-US201606003863

PATIENT
  Age: 68 Year
  Sex: Female

DRUGS (3)
  1. HUMALOG [Suspect]
     Active Substance: INSULIN LISPRO
     Dosage: UNK
  2. PREDNISONE. [Suspect]
     Active Substance: PREDNISONE
     Indication: PRODUCT USED FOR UNKNOWN INDICATION
     Dosage: UNK, UNKNOWN
     Route: 065
  3. HUMALOG [Suspect]
     Active Substance: INSULIN LISPRO
     Indication: TYPE 1 DIABETES MELLITUS
     Dosage: SLIDING SCALE
     Route: 065
     Dates: start: 201603

REACTIONS (17)
  - Hyperphagia [Unknown]
  - Diarrhoea [Unknown]
  - Malaise [Unknown]
  - Blood glucose increased [Unknown]
  - Blood glucose increased [Unknown]
  - Abdominal pain upper [Unknown]
  - Weight increased [Unknown]
  - Stress [Unknown]
  - Dehydration [Unknown]
  - Frequent bowel movements [Unknown]
  - Asthenia [Unknown]
  - Clostridium difficile infection [Unknown]
  - Weight abnormal [Unknown]
  - Malnutrition [Unknown]
  - Abnormal loss of weight [Unknown]
  - Abdominal distension [Unknown]
  - Incorrect drug administration duration [Unknown]

NARRATIVE: CASE EVENT DATE: 201606
